FAERS Safety Report 9536114 (Version 1)
Quarter: 2013Q3

REPORT INFORMATION
  Report Type: Spontaneous
  Country: US (occurrence: None)
  Receive Date: 20130917
  Receipt Date: 20130917
  Transmission Date: 20140515
  Serious: No
  Sender: FDA-Public Use
  Company Number: None

PATIENT
  Age: 66 Year
  Sex: Female
  Weight: 49.9 kg

DRUGS (14)
  1. TRICOR 145 MG ABBOT [Suspect]
     Indication: BLOOD CHOLESTEROL INCREASED
     Route: 048
     Dates: start: 201206, end: 201306
  2. VICODIN [Suspect]
  3. EFFEXOR [Suspect]
  4. XANAX [Suspect]
  5. ALBUTEROL HFA [Suspect]
  6. FLONASE [Suspect]
  7. OMEPRAZOLE [Suspect]
  8. CHLORPHENIRAMINE [Suspect]
  9. TRAZODONE [Suspect]
  10. CENTRUM VITAMINS LIQUID [Concomitant]
  11. FISH OIL [Concomitant]
  12. B COMPLEX [Concomitant]
  13. ASA [Concomitant]
  14. SUDAFED PE [Concomitant]

REACTIONS (35)
  - Rash [None]
  - Urticaria [None]
  - Pruritus [None]
  - Dyspnoea [None]
  - Chest discomfort [None]
  - Oedema mouth [None]
  - Face oedema [None]
  - Lip oedema [None]
  - Tongue oedema [None]
  - Pain in extremity [None]
  - Local swelling [None]
  - Chest pain [None]
  - Haemoptysis [None]
  - Chromaturia [None]
  - Oliguria [None]
  - Pyrexia [None]
  - Chills [None]
  - Oropharyngeal pain [None]
  - Decreased appetite [None]
  - Muscular weakness [None]
  - Faeces discoloured [None]
  - Erythema [None]
  - Blister [None]
  - Skin exfoliation [None]
  - Headache [None]
  - Dizziness [None]
  - Nausea [None]
  - Vomiting [None]
  - Abdominal pain upper [None]
  - Contusion [None]
  - Haemorrhage [None]
  - Fatigue [None]
  - Asthenia [None]
  - Yellow skin [None]
  - Ocular icterus [None]
